FAERS Safety Report 14785857 (Version 1)
Quarter: 2018Q2

REPORT INFORMATION
  Report Type: Spontaneous
  Country: DK (occurrence: DK)
  Receive Date: 20180420
  Receipt Date: 20180420
  Transmission Date: 20180711
  Serious: Yes (Life-Threatening, Hospitalization, Disabling)
  Sender: FDA-Public Use
  Company Number: DK-TEVA-502648ISR

PATIENT
  Age: 40 Year
  Sex: Male

DRUGS (1)
  1. LAMOTRIGIN TEVA 200 MG [Suspect]
     Active Substance: LAMOTRIGINE
     Indication: MYOTONIC DYSTROPHY
     Dosage: 100 MILLIGRAM DAILY; STRENGTH: INCREASE OF DOSAGE TO 100 MG/DAY
     Route: 048
     Dates: start: 20140522, end: 201406

REACTIONS (15)
  - Pyrexia [Recovered/Resolved]
  - Rash generalised [Recovered/Resolved]
  - Cough [Recovered/Resolved]
  - Renal impairment [Recovered/Resolved]
  - Blood creatinine increased [Recovered/Resolved]
  - Cataract [Recovered/Resolved]
  - Night sweats [Recovering/Resolving]
  - Hepatic function abnormal [Recovered/Resolved]
  - Dyspnoea [Recovered/Resolved]
  - Lung disorder [Recovered/Resolved]
  - Drug reaction with eosinophilia and systemic symptoms [Recovered/Resolved]
  - Malaise [Recovered/Resolved]
  - Tubulointerstitial nephritis [Recovered/Resolved]
  - Fatigue [Recovered/Resolved]
  - Chills [Recovering/Resolving]

NARRATIVE: CASE EVENT DATE: 201406
